FAERS Safety Report 8483314 (Version 2)
Quarter: 2013Q4

REPORT INFORMATION
  Report Type: Spontaneous
  Country: US (occurrence: US)
  Receive Date: 20120329
  Receipt Date: 20131213
  Transmission Date: 20140711
  Serious: Yes (Disabling)
  Sender: FDA-Public Use
  Company Number: US-MYLANLABS-2011S1012805

PATIENT
  Age: 75 Year
  Sex: Female

DRUGS (8)
  1. FENTANYL TRANSDERMAL SYSTEM [Suspect]
     Indication: BACK PAIN
     Dosage: CHANGE Q3D
     Route: 062
     Dates: start: 20080202, end: 20080203
  2. GABAPENTIN [Concomitant]
  3. RANITIDINE [Concomitant]
  4. METOPROLOL [Concomitant]
  5. ASPIRIN [Concomitant]
  6. TYLENOL W/CODEINE NO. 3 [Concomitant]
     Dosage: 1 - 2 DAILY
  7. SIMVASTATIN [Concomitant]
  8. TYLENOL W/CODEINE NO. 4 [Concomitant]

REACTIONS (21)
  - Activities of daily living impaired [Recovered/Resolved]
  - Malaise [Recovered/Resolved]
  - Hypopnoea [Recovered/Resolved]
  - Confusional state [Recovered/Resolved]
  - Pain [Recovered/Resolved]
  - Nausea [Recovered/Resolved]
  - Diarrhoea [Recovered/Resolved]
  - Asthenia [Recovered/Resolved]
  - Aphagia [Recovered/Resolved]
  - Decreased appetite [Recovered/Resolved]
  - Dizziness [Recovered/Resolved]
  - Somnolence [Recovered/Resolved]
  - Dehydration [Recovered/Resolved]
  - Insomnia [Recovered/Resolved]
  - Weight decreased [Recovered/Resolved]
  - Hyperhidrosis [Recovered/Resolved]
  - Pallor [Recovered/Resolved]
  - Scratch [Recovered/Resolved]
  - Alopecia [Recovered/Resolved]
  - Application site pruritus [Recovered/Resolved]
  - Erythema [Recovered/Resolved]
